FAERS Safety Report 9912627 (Version 1)
Quarter: 2014Q1

REPORT INFORMATION
  Report Type: Spontaneous
  Country: CZ (occurrence: None)
  Receive Date: 20140212
  Receipt Date: 20140212
  Transmission Date: 20141002
  Serious: Yes (Life-Threatening, Hospitalization)
  Sender: FDA-Public Use
  Company Number: FK201400419

PATIENT
  Age: 39 Year
  Sex: Female

DRUGS (6)
  1. PACLITAXEL [Suspect]
     Indication: CERVIX CARCINOMA
     Route: 041
     Dates: start: 20140104, end: 20140104
  2. PLATIDIAM [Suspect]
     Indication: CERVIX CARCINOMA
     Route: 041
     Dates: start: 20140104, end: 20140104
  3. RANITAL (RANITDINE) [Concomitant]
  4. GRANISETRON TEVA (GRANISETRON HYDROCHLORIDE) [Concomitant]
  5. DEXANED (DEXAMETAHSONE) [Concomitant]
  6. KALIUM CHLOATUM LECIVA (POTASSTIUM CHLORIDE) [Concomitant]

REACTIONS (2)
  - Pruritus generalised [None]
  - Erythema [None]
